FAERS Safety Report 17776676 (Version 1)
Quarter: 2020Q2

REPORT INFORMATION
  Report Type: Spontaneous
  Country: US (occurrence: US)
  Receive Date: 20200513
  Receipt Date: 20200513
  Transmission Date: 20200714
  Serious: Yes (Hospitalization)
  Sender: FDA-Public Use
  Company Number: None

PATIENT
  Age: 53 Year
  Sex: Female

DRUGS (7)
  1. POTASSIUM [Concomitant]
     Active Substance: POTASSIUM
  2. TACORLIMUS [Concomitant]
  3. CELEXA [Concomitant]
     Active Substance: CITALOPRAM HYDROBROMIDE
  4. VITAMIN D [Concomitant]
     Active Substance: VITAMIN D NOS
  5. MYCOPHENOLIC 360MG DR TAB [Suspect]
     Active Substance: MYCOPHENOLIC ACID
     Indication: RENAL TRANSPLANT
     Route: 048
     Dates: start: 20130629
  6. CLONAZEPAM. [Concomitant]
     Active Substance: CLONAZEPAM
  7. MULTIVITAMIN ADULT [Concomitant]

REACTIONS (1)
  - Mitral valve incompetence [None]

NARRATIVE: CASE EVENT DATE: 20200416
